FAERS Safety Report 6856175-8 (Version None)
Quarter: 2010Q3

REPORT INFORMATION
  Report Type: 
  Country: None (occurrence: None)
  Receive Date: 20100719
  Receipt Date: 20100712
  Transmission Date: 20110219
  Serious: Yes (Life-Threatening, Hospitalization)
  Sender: FDA-Public Use
  Company Number: PHHY2010US34981

PATIENT
  Sex: Male

DRUGS (4)
  1. GLEEVEC [Suspect]
     Indication: CHRONIC MYELOID LEUKAEMIA
     Dosage: 400 MG, QD
     Route: 048
     Dates: start: 20100101
  2. ATENOLOL [Concomitant]
  3. HYDROCHLOROTHIAZIDE [Concomitant]
  4. LISINOPRIL [Concomitant]
     Dosage: UNK

REACTIONS (5)
  - BLOOD PRESSURE ORTHOSTATIC ABNORMAL [None]
  - HEMIPLEGIA [None]
  - MUSCULAR WEAKNESS [None]
  - NAUSEA [None]
  - SUICIDAL IDEATION [None]
